FAERS Safety Report 6780811-8 (Version None)
Quarter: 2010Q2

REPORT INFORMATION
  Report Type: 
  Country: None (occurrence: None)
  Receive Date: 20100621
  Receipt Date: 20100602
  Transmission Date: 20101027
  Serious: Yes (Other)
  Sender: FDA-Public Use
  Company Number: US-BAYER-201011105NA

PATIENT
  Age: 21 Year
  Sex: Female

DRUGS (5)
  1. YAZ [Suspect]
     Indication: DRUG USE FOR UNKNOWN INDICATION
     Route: 048
  2. OCELLA [Suspect]
     Indication: DRUG USE FOR UNKNOWN INDICATION
     Dosage: PHARMACY RECORDS: OCELLA DISPENSED. FIRST DATE WAS ON 27-JUL-2008 AND LAST DATE WAS 09-DEC-2008.
     Route: 048
  3. ACIPHEX [Concomitant]
  4. SINGULAIR [Concomitant]
  5. GENERAL ANESTHESIA [Concomitant]

REACTIONS (8)
  - ABDOMINAL DISCOMFORT [None]
  - ABDOMINAL PAIN UPPER [None]
  - ABDOMINAL TENDERNESS [None]
  - CHOLECYSTITIS CHRONIC [None]
  - EPIGASTRIC DISCOMFORT [None]
  - INJURY [None]
  - NAUSEA [None]
  - VOMITING [None]
